FAERS Safety Report 15526381 (Version 2)
Quarter: 2018Q4

REPORT INFORMATION
  Report Type: Report from Study
  Country: GB (occurrence: GB)
  Receive Date: 20181018
  Receipt Date: 20181119
  Transmission Date: 20190205
  Serious: Yes (Death, Hospitalization)
  Sender: FDA-Public Use
  Company Number: GB-ROCHE-2192669

PATIENT
  Age: 74 Year
  Sex: Male
  Weight: 83.4 kg

DRUGS (2)
  1. RO 6874281 (FAP IL2V MAB) [Suspect]
     Active Substance: RO-6874281
     Indication: NEOPLASM
     Dosage: STARTING DOSE WAS 10 MG AND WOULD BE UP-TITRATED TO 15 MG FROM SECOND ADMINISTRATION ONWARDS AS PER
     Route: 042
     Dates: start: 20180911
  2. ATEZOLIZUMAB. [Suspect]
     Active Substance: ATEZOLIZUMAB
     Indication: NEOPLASM
     Dosage: DATE OF MOST RECENT DOSE OF ATEZOLIZUMAB PRIOR TO THE SAE ONSET WAS 11/SEP/2018 AT 10:56
     Route: 042
     Dates: start: 20180911

REACTIONS (1)
  - Tumour haemorrhage [Fatal]

NARRATIVE: CASE EVENT DATE: 20180926
